FAERS Safety Report 4728900-3 (Version None)
Quarter: 2005Q3

REPORT INFORMATION
  Report Type: 
  Country: None (occurrence: None)
  Receive Date: 20050729
  Receipt Date: 20050429
  Transmission Date: 20060218
  Serious: No
  Sender: FDA-Public Use
  Company Number: US-GLAXOSMITHKLINE-A0556315A

PATIENT
  Age: 54 Year
  Sex: Female

DRUGS (5)
  1. IMITREX [Suspect]
     Indication: MIGRAINE
     Dosage: 50MG AS REQUIRED
     Route: 048
  2. PRILOSEC [Concomitant]
  3. PROZAC [Concomitant]
  4. ANTI-INFLAMMATORY [Concomitant]
  5. TYLENOL [Concomitant]

REACTIONS (3)
  - ARTHRALGIA [None]
  - ORAL PAIN [None]
  - PAIN [None]
